FAERS Safety Report 4263734-8 (Version None)
Quarter: 2004Q1

REPORT INFORMATION
  Report Type: 
  Country: None (occurrence: None)
  Receive Date: 20040102
  Receipt Date: 20031223
  Transmission Date: 20041129
  Serious: Yes (Hospitalization)
  Sender: FDA-Public Use
  Company Number: USA031254588

PATIENT
  Age: 72 Year
  Sex: Female

DRUGS (2)
  1. PROZAC [Suspect]
     Indication: DEPRESSION
     Dosage: 20 MG/DAY
  2. TALWIN [Concomitant]

REACTIONS (2)
  - LABILE BLOOD PRESSURE [None]
  - SEROTONIN SYNDROME [None]
